FAERS Safety Report 21377554 (Version 2)
Quarter: 2022Q4

REPORT INFORMATION
  Report Type: Spontaneous
  Country: US (occurrence: US)
  Receive Date: 20220926
  Receipt Date: 20221005
  Transmission Date: 20230112
  Serious: No
  Sender: FDA-Public Use
  Company Number: US-Calliditas-2022CAL00349

PATIENT
  Age: 62 Year
  Sex: Female

DRUGS (7)
  1. TARPEYO [Suspect]
     Active Substance: BUDESONIDE
     Indication: Haematuria
     Dosage: 16 MG (4 MG CAPSULES) ONCE DAILY
     Route: 048
     Dates: start: 20220820
  2. QUINAPRIL [Concomitant]
     Active Substance: QUINAPRIL
     Indication: Hypertension
  3. LASIX [Concomitant]
     Active Substance: FUROSEMIDE
     Indication: Hypertension
  4. EPLERENONE [Concomitant]
     Active Substance: EPLERENONE
     Indication: Hypertension
  5. CHOLESTEROL CARE [Concomitant]
  6. CHOLECALCIFEROL [Concomitant]
     Active Substance: CHOLECALCIFEROL
  7. VITAMIN B12 [HYDROXOCOBALAMIN ACETATE] [Concomitant]

REACTIONS (1)
  - Hot flush [Not Recovered/Not Resolved]

NARRATIVE: CASE EVENT DATE: 20220827
